FAERS Safety Report 8120485 (Version 5)
Quarter: 2013Q4

REPORT INFORMATION
  Report Type: Spontaneous
  Country: US (occurrence: US)
  Receive Date: 20110906
  Receipt Date: 20131010
  Transmission Date: 20140711
  Serious: Yes (Other)
  Sender: FDA-Public Use
  Company Number: US-AMGEN-USASP2011025288

PATIENT
  Age: 28 Year
  Sex: Female

DRUGS (6)
  1. NPLATE [Suspect]
     Indication: IMMUNE THROMBOCYTOPENIC PURPURA
     Dosage: 3 MUG/KG, QWK
     Route: 058
     Dates: start: 20101108
  2. FOLATE [Concomitant]
     Indication: PREGNANCY
     Dosage: 1 MG, QD
     Dates: start: 20110301
  3. PRENATAL VITAMINS                  /01549301/ [Concomitant]
     Indication: PREGNANCY
     Dosage: 1 UNK, QD
     Route: 048
  4. DEXAMETHASONE [Concomitant]
     Dosage: 8 MG, UNK
  5. IMMUNE GLOBULIN [Concomitant]
     Route: 042
  6. PREDNISONE [Concomitant]

REACTIONS (5)
  - Thrombocytopenia [Unknown]
  - Epistaxis [Unknown]
  - Placental infarction [Unknown]
  - Premature delivery [Recovered/Resolved]
  - Thrombocytosis [Unknown]
